FAERS Safety Report 4506622-1 (Version None)
Quarter: 2004Q4

REPORT INFORMATION
  Report Type: 
  Country: None (occurrence: None)
  Receive Date: 20041122
  Receipt Date: 20041108
  Transmission Date: 20050328
  Serious: Yes (Death, Hospitalization)
  Sender: FDA-Public Use
  Company Number: JP-MERCK-0411USA01770

PATIENT
  Age: 78 Year
  Sex: Female

DRUGS (7)
  1. COZAAR [Suspect]
     Indication: CARDIAC FAILURE CHRONIC
     Route: 048
     Dates: start: 20040927, end: 20041019
  2. COZAAR [Suspect]
     Route: 048
     Dates: end: 20040926
  3. COZAAR [Suspect]
     Indication: HYPERTENSION
     Route: 048
     Dates: start: 20040927, end: 20041019
  4. COZAAR [Suspect]
     Route: 048
     Dates: end: 20040926
  5. SYMMETREL [Suspect]
     Indication: DYSTHYMIC DISORDER
     Route: 048
     Dates: end: 20041019
  6. ZYPREXA [Suspect]
     Indication: DYSTHYMIC DISORDER
     Route: 048
     Dates: end: 20041019
  7. RISPERDAL [Suspect]
     Indication: DYSTHYMIC DISORDER
     Route: 048
     Dates: end: 20041019

REACTIONS (7)
  - CARDIAC FAILURE CHRONIC [None]
  - DECREASED APPETITE [None]
  - DEPRESSED LEVEL OF CONSCIOUSNESS [None]
  - FEMORAL NECK FRACTURE [None]
  - HYPERTENSION [None]
  - MULTI-ORGAN FAILURE [None]
  - NEUROLEPTIC MALIGNANT SYNDROME [None]
